FAERS Safety Report 7014979-5 (Version None)
Quarter: 2010Q3

REPORT INFORMATION
  Report Type: 
  Country: None (occurrence: None)
  Receive Date: 20100927
  Receipt Date: 20091006
  Transmission Date: 20110219
  Serious: No
  Sender: FDA-Public Use
  Company Number: US-ASTRAZENECA-2009SE18225

PATIENT
  Sex: Female
  Weight: 65.8 kg

DRUGS (1)
  1. ARIMIDEX [Suspect]
     Route: 048
     Dates: start: 20080101

REACTIONS (3)
  - INSOMNIA [None]
  - MYALGIA [None]
  - QUALITY OF LIFE DECREASED [None]
